FAERS Safety Report 24323428 (Version 2)
Quarter: 2024Q3

REPORT INFORMATION
  Report Type: Spontaneous
  Country: CN (occurrence: CN)
  Receive Date: 20240916
  Receipt Date: 20240926
  Transmission Date: 20241016
  Serious: Yes (Other)
  Sender: NOVARTIS
  Company Number: CN-002147023-NVSC2024CN182567

PATIENT
  Sex: Female

DRUGS (1)
  1. DIOVAN [Suspect]
     Active Substance: VALSARTAN
     Indication: Paternal exposure during pregnancy
     Dosage: UNK (EXPOSURE VIA PARTNER)
     Route: 050

REACTIONS (2)
  - Foetal growth restriction [Unknown]
  - Paternal exposure during pregnancy [Unknown]
